FAERS Safety Report 15935213 (Version 1)
Quarter: 2019Q1

REPORT INFORMATION
  Report Type: Report from Study
  Country: None (occurrence: FR)
  Receive Date: 20190207
  Receipt Date: 20190207
  Transmission Date: 20190417
  Serious: Yes (Hospitalization, Other)
  Sender: FDA-Public Use
  Company Number: FR-ABBVIE-19S-056-2636065-00

PATIENT
  Age: 69 Year
  Sex: Male

DRUGS (2)
  1. DUODOPA [Suspect]
     Active Substance: CARBIDOPA\LEVODOPA
     Indication: PARKINSON^S DISEASE
     Dosage: CONTINUOUS FLOW RATE DURING THE DAY: 3.6 MG/HR
     Route: 050
     Dates: start: 20181122
  2. DUODOPA [Suspect]
     Active Substance: CARBIDOPA\LEVODOPA
     Dosage: CONTINUOUS FLOW RATE DURING THE DAY: 3.4 MG/HR
     Route: 050
     Dates: start: 201901

REACTIONS (6)
  - Hallucination [Unknown]
  - Abnormal behaviour [Unknown]
  - Incorrect route of product administration [Unknown]
  - Malaise [Unknown]
  - Alcohol problem [Unknown]
  - Device occlusion [Unknown]

NARRATIVE: CASE EVENT DATE: 20190121
